FAERS Safety Report 25941147 (Version 1)
Quarter: 2025Q4

REPORT INFORMATION
  Report Type: Spontaneous
  Country: US (occurrence: US)
  Receive Date: 20251020
  Receipt Date: 20251020
  Transmission Date: 20260118
  Serious: Yes (Other)
  Sender: ELI LILLY AND COMPANY
  Company Number: US-ELI_LILLY_AND_COMPANY-US202510015736

PATIENT
  Sex: Female

DRUGS (3)
  1. PROZAC [Interacting]
     Active Substance: FLUOXETINE HYDROCHLORIDE
     Indication: Product used for unknown indication
     Dosage: UNK UNK, UNKNOWN
     Route: 065
  2. ARISTADA [Interacting]
     Active Substance: ARIPIPRAZOLE LAUROXIL
     Indication: Product used for unknown indication
     Dosage: 441 MG, MONTHLY (1/M)
     Route: 030
     Dates: start: 2023
  3. ARISTADA [Interacting]
     Active Substance: ARIPIPRAZOLE LAUROXIL
     Dosage: UNK UNK, UNKNOWN
     Route: 065

REACTIONS (3)
  - Syncope [Unknown]
  - Drug interaction [Unknown]
  - Hypotension [Unknown]

NARRATIVE: CASE EVENT DATE: 20250101
